FAERS Safety Report 9410255 (Version 2)
Quarter: 2013Q3

REPORT INFORMATION
  Report Type: Spontaneous
  Country: US (occurrence: US)
  Receive Date: 20130719
  Receipt Date: 20130731
  Transmission Date: 20140515
  Serious: Yes (Other)
  Sender: FDA-Public Use
  Company Number: US-BAXTER-2013BAX027403

PATIENT
  Sex: Female
  Weight: 41 kg

DRUGS (7)
  1. GAMMAGARD LIQUID [Suspect]
     Indication: RASMUSSEN ENCEPHALITIS
     Route: 042
     Dates: start: 201304, end: 201304
  2. GAMMAGARD LIQUID [Suspect]
     Indication: OFF LABEL USE
     Route: 042
     Dates: start: 201305, end: 201305
  3. GAMMAGARD LIQUID [Suspect]
     Route: 042
     Dates: start: 201306, end: 201306
  4. GAMMAGARD LIQUID [Suspect]
     Route: 042
     Dates: start: 201307, end: 201307
  5. GAMMAGARD LIQUID [Suspect]
     Route: 042
     Dates: start: 20130719, end: 20130719
  6. 0.9% SODIUM CHLORIDE INJECTION [Suspect]
     Indication: DEHYDRATION
     Dosage: 50 ML/HR
     Route: 042
     Dates: start: 201304, end: 20130719
  7. TEGRETOL [Concomitant]
     Indication: PRODUCT USED FOR UNKNOWN INDICATION
     Route: 048

REACTIONS (8)
  - Vision blurred [Recovered/Resolved]
  - Visual acuity reduced [Recovered/Resolved]
  - Headache [Unknown]
  - Pyrexia [Recovered/Resolved]
  - Nausea [Unknown]
  - Photosensitivity reaction [Recovered/Resolved]
  - Skin exfoliation [Unknown]
  - Wrong technique in drug usage process [Recovered/Resolved]
